FAERS Safety Report 10905157 (Version 5)
Quarter: 2015Q3

REPORT INFORMATION
  Report Type: Report from Study
  Country: US (occurrence: US)
  Receive Date: 20150311
  Receipt Date: 20150911
  Transmission Date: 20151125
  Serious: Yes (Hospitalization, Other)
  Sender: FDA-Public Use
  Company Number: US-SA-2014SA090397

PATIENT
  Age: 67 Year
  Sex: Female
  Weight: 40.3 kg

DRUGS (6)
  1. SYNTHROID [Concomitant]
     Active Substance: LEVOTHYROXINE SODIUM
     Dates: start: 201402
  2. AUBAGIO [Suspect]
     Active Substance: TERIFLUNOMIDE
     Indication: MULTIPLE SCLEROSIS
     Dosage: FREQUENCY=EVERY TWO DAYS
     Route: 048
     Dates: start: 20140701
  3. WELLBATRIN [Concomitant]
     Active Substance: BUPROPION HYDROCHLORIDE
     Dates: start: 2010
  4. ADVIL [Concomitant]
     Active Substance: IBUPROFEN
     Indication: PAIN
  5. AUBAGIO [Suspect]
     Active Substance: TERIFLUNOMIDE
     Indication: MULTIPLE SCLEROSIS
     Dosage: FREQUENCY- EVERY 3 TO 4 DAYS
     Route: 048
     Dates: start: 20140801, end: 201508
  6. NEURONTIN [Concomitant]
     Active Substance: GABAPENTIN
     Indication: MULTIPLE SCLEROSIS
     Dates: start: 2010

REACTIONS (21)
  - Back pain [Unknown]
  - Malaise [Unknown]
  - Rash [Recovering/Resolving]
  - Pruritus [Not Recovered/Not Resolved]
  - Treatment noncompliance [Unknown]
  - Condition aggravated [Unknown]
  - Abdominal pain upper [Unknown]
  - Diarrhoea [Unknown]
  - Drug dose omission [Unknown]
  - Erythema [Not Recovered/Not Resolved]
  - Unevaluable event [Unknown]
  - Nausea [Unknown]
  - Skin burning sensation [Not Recovered/Not Resolved]
  - Asthenia [Unknown]
  - Dermatitis allergic [Unknown]
  - Acne [Not Recovered/Not Resolved]
  - Burning sensation [Not Recovered/Not Resolved]
  - Rash [Not Recovered/Not Resolved]
  - Inappropriate schedule of drug administration [Unknown]
  - Hepatic cyst [Not Recovered/Not Resolved]
  - Eye disorder [Unknown]

NARRATIVE: CASE EVENT DATE: 20140708
